FAERS Safety Report 7878995-3 (Version None)
Quarter: 2011Q4

REPORT INFORMATION
  Report Type: 
  Country: None (occurrence: None)
  Receive Date: 20111101
  Receipt Date: 20111019
  Transmission Date: 20120403
  Serious: Yes (Death, Hospitalization)
  Sender: FDA-Public Use
  Company Number: PHHO2011FR17812

PATIENT
  Sex: Female
  Weight: 59 kg

DRUGS (5)
  1. NEORAL [Suspect]
     Indication: RENAL TRANSPLANT
     Dosage: 150 MG, UNK
     Dates: start: 20101022
  2. SOLU-MEDROL [Concomitant]
     Indication: RENAL TRANSPLANT
     Dosage: 250 MG, UNK
     Route: 048
     Dates: start: 20100811, end: 20100812
  3. MYCOPHENOLATE MOFETIL (CELLCEPT) [Concomitant]
     Indication: RENAL TRANSPLANT
     Dosage: 500 MG, UNK
     Route: 048
     Dates: start: 20100811
  4. PREDNISONE [Suspect]
     Indication: RENAL TRANSPLANT
     Dosage: 10 MG, UNK
     Route: 048
     Dates: start: 20100813
  5. RAD 666 / RAD 001A [Suspect]
     Indication: RENAL TRANSPLANT
     Dosage: UNK

REACTIONS (5)
  - DIABETES MELLITUS [None]
  - GASTRIC CANCER [None]
  - CONCOMITANT DISEASE PROGRESSION [None]
  - GASTROINTESTINAL HAEMORRHAGE [None]
  - METASTASES TO PERITONEUM [None]
